FAERS Safety Report 4789870-5 (Version None)
Quarter: 2005Q3

REPORT INFORMATION
  Report Type: 
  Country: None (occurrence: None)
  Receive Date: 20050914
  Receipt Date: 20040920
  Transmission Date: 20060218
  Serious: Yes (Hospitalization)
  Sender: FDA-Public Use
  Company Number: 163-20785-04090567

PATIENT
  Age: 54 Year
  Sex: Female
  Weight: 88 kg

DRUGS (9)
  1. THALOMID [Suspect]
     Indication: OVARIAN EPITHELIAL CANCER RECURRENT
     Dosage: 500MG, DAILY, ORAL
     Route: 048
     Dates: start: 20040628
  2. TOPETECAN (TOPOTECAN) (UNKNOWN) [Suspect]
     Indication: OVARIAN EPITHELIAL CANCER RECURRENT
     Dosage: 1.25 MG/M2 X 5 DAYS Q21 DAYS, INTRAVENOUS
     Route: 042
     Dates: start: 20040628
  3. TRAZODONE [Concomitant]
  4. COUMADIN [Concomitant]
  5. ATIVAN [Concomitant]
  6. SENNA [Concomitant]
  7. ZANTAC [Concomitant]
  8. COLACE (DOCUSATE SODIUM) [Concomitant]
  9. MULTI-VITAMINS [Concomitant]

REACTIONS (4)
  - DYSPNOEA [None]
  - HAEMOGLOBIN DECREASED [None]
  - PLEURAL EFFUSION [None]
  - PYREXIA [None]
